FAERS Safety Report 9521490 (Version 1)
Quarter: 2013Q3

REPORT INFORMATION
  Report Type: Spontaneous
  Country: US (occurrence: None)
  Receive Date: 20130911
  Receipt Date: 20130911
  Transmission Date: 20140515
  Serious: Yes (Hospitalization, Other)
  Sender: FDA-Public Use
  Company Number: 001594197A

PATIENT
  Age: 23 Year
  Sex: Female

DRUGS (3)
  1. PROACTIV RENEWING CLEANSER [Suspect]
     Indication: ACNE
     Dosage: ONCE DAILY DERMAL
     Dates: start: 20130529, end: 20130530
  2. PROACTIV REPAIRING TREATMENT [Suspect]
     Indication: ACNE
     Dosage: ONCE DAILY DERMAL
     Dates: start: 20130529, end: 20130530
  3. PROACTIV DARK SPOT CORRECTOR [Suspect]
     Indication: ACNE
     Dosage: ONCE DAILY DERMAL
     Dates: start: 20130529, end: 20130530

REACTIONS (5)
  - Swelling face [None]
  - Pruritus [None]
  - Erythema [None]
  - Throat tightness [None]
  - Dyspnoea [None]
